FAERS Safety Report 19375293 (Version 4)
Quarter: 2021Q4

REPORT INFORMATION
  Report Type: Report from Study
  Country: JP (occurrence: JP)
  Receive Date: 20210604
  Receipt Date: 20211028
  Transmission Date: 20220303
  Serious: Yes (Death, Other)
  Sender: FDA-Public Use
  Company Number: JP-MERCK HEALTHCARE KGAA-E2B_90080102

PATIENT
  Age: 57 Year
  Sex: Female

DRUGS (2)
  1. TEPMETKO [Suspect]
     Active Substance: TEPOTINIB HYDROCHLORIDE
     Indication: Non-small cell lung cancer
     Route: 048
     Dates: start: 20200904, end: 20210401
  2. FENTANYL [Concomitant]
     Active Substance: FENTANYL
     Indication: Product used for unknown indication

REACTIONS (7)
  - Renal impairment [Not Recovered/Not Resolved]
  - Disease progression [Fatal]
  - Bacteraemia [Recovered/Resolved]
  - Urinary tract infection [Recovered/Resolved]
  - Hepatic function abnormal [Recovered/Resolved]
  - Nausea [Not Recovered/Not Resolved]
  - Oedema [Not Recovered/Not Resolved]

NARRATIVE: CASE EVENT DATE: 20200905
